FAERS Safety Report 6895665-9 (Version None)
Quarter: 2010Q3

REPORT INFORMATION
  Report Type: 
  Country: None (occurrence: None)
  Receive Date: 20100802
  Receipt Date: 20100726
  Transmission Date: 20110219
  Serious: Yes (Hospitalization)
  Sender: FDA-Public Use
  Company Number: FR-SANOFI-AVENTIS-2010SA043818

PATIENT
  Age: 93 Year
  Sex: Female
  Weight: 35 kg

DRUGS (2)
  1. LANTUS [Suspect]
     Route: 058
     Dates: start: 20060601
  2. OMEPRAZOLE [Suspect]
     Route: 048
     Dates: start: 20090807, end: 20090816

REACTIONS (3)
  - ALTERED STATE OF CONSCIOUSNESS [None]
  - HYPONATRAEMIA [None]
  - VOMITING [None]
